FAERS Safety Report 5418358-3 (Version None)
Quarter: 2007Q3

REPORT INFORMATION
  Report Type: 
  Country: None (occurrence: None)
  Receive Date: 20070817
  Receipt Date: 20070813
  Transmission Date: 20080115
  Serious: Yes (Congenital Anomaly, Other)
  Sender: FDA-Public Use
  Company Number: AU-JNJFOC-20070404434

PATIENT
  Sex: Male
  Weight: 4.6 kg

DRUGS (1)
  1. NIZORAL [Suspect]
     Indication: DRUG EXPOSURE DURING PREGNANCY

REACTIONS (14)
  - ABNORMAL PALMAR/PLANTAR CREASES [None]
  - BENIGN CONGENITAL HYPOTONIA [None]
  - CONGENITAL EYE DISORDER [None]
  - CONGENITAL FOOT MALFORMATION [None]
  - CONGENITAL HAND MALFORMATION [None]
  - CRYPTORCHISM [None]
  - DEVELOPMENTAL DELAY [None]
  - EPILEPSY [None]
  - HIGH ARCHED PALATE [None]
  - LIMB MALFORMATION [None]
  - LOW SET EARS [None]
  - MICROGNATHIA [None]
  - NIPPLE DISORDER [None]
  - PSEUDOBULBAR PALSY [None]
